FAERS Safety Report 5545639-5 (Version None)
Quarter: 2007Q4

REPORT INFORMATION
  Report Type: 
  Country: None (occurrence: None)
  Receive Date: 20071126
  Receipt Date: 20070509
  Transmission Date: 20080405
  Serious: Yes (Hospitalization)
  Sender: FDA-Public Use
  Company Number: 2007BH002330

PATIENT
  Age: 51 Year
  Sex: Female
  Weight: 88.4 kg

DRUGS (1)
  1. DIANEAL [Suspect]
     Indication: RENAL FAILURE CHRONIC
     Dosage: 6 L; IP
     Route: 033

REACTIONS (3)
  - CONSTIPATION [None]
  - PERITONITIS BACTERIAL [None]
  - PYREXIA [None]
